FAERS Safety Report 24448812 (Version 1)
Quarter: 2024Q4

REPORT INFORMATION
  Report Type: Spontaneous
  Country: CZ (occurrence: CZ)
  Receive Date: 20241017
  Receipt Date: 20241017
  Transmission Date: 20250114
  Serious: Yes (Hospitalization, Other)
  Sender: CHEPLAPHARM
  Company Number: None

PATIENT
  Age: 53 Year
  Sex: Female
  Weight: 48 kg

DRUGS (26)
  1. CAPECITABINE [Suspect]
     Active Substance: CAPECITABINE
     Indication: Colorectal cancer metastatic
     Dates: start: 202106, end: 202106
  2. CAPECITABINE [Suspect]
     Active Substance: CAPECITABINE
     Indication: Colorectal cancer metastatic
     Dates: start: 202106, end: 202110
  3. OXALIPLATIN [Suspect]
     Active Substance: OXALIPLATIN
     Indication: Colorectal cancer metastatic
     Dates: start: 201711, end: 201801
  4. OXALIPLATIN [Suspect]
     Active Substance: OXALIPLATIN
     Indication: Colorectal cancer metastatic
     Dates: start: 202106, end: 202106
  5. IRINOTECAN [Suspect]
     Active Substance: IRINOTECAN
     Indication: Colorectal cancer metastatic
     Dates: start: 201808, end: 201907
  6. FLUOROURACIL [Concomitant]
     Active Substance: FLUOROURACIL
     Indication: Colorectal cancer metastatic
     Dates: start: 201711, end: 201801
  7. FLUOROURACIL [Concomitant]
     Active Substance: FLUOROURACIL
     Indication: Hypertension
     Dates: start: 201711, end: 201801
  8. FLUOROURACIL [Concomitant]
     Active Substance: FLUOROURACIL
     Indication: Metastases to liver
     Dates: start: 201711, end: 201801
  9. FLUOROURACIL [Concomitant]
     Active Substance: FLUOROURACIL
     Indication: Colorectal cancer metastatic
     Dates: start: 201808, end: 201907
  10. FLUOROURACIL [Concomitant]
     Active Substance: FLUOROURACIL
     Indication: Hypertension
     Dates: start: 201808, end: 201907
  11. FLUOROURACIL [Concomitant]
     Active Substance: FLUOROURACIL
     Indication: Metastases to liver
     Dates: start: 201808, end: 201907
  12. AVASTIN [Concomitant]
     Active Substance: BEVACIZUMAB
     Indication: Colorectal cancer metastatic
     Dates: start: 201711, end: 201801
  13. AVASTIN [Concomitant]
     Active Substance: BEVACIZUMAB
     Indication: Metastases to liver
     Dates: start: 201711, end: 201801
  14. AVASTIN [Concomitant]
     Active Substance: BEVACIZUMAB
     Indication: Hypertension
     Dates: start: 201711, end: 201801
  15. AVASTIN [Concomitant]
     Active Substance: BEVACIZUMAB
     Indication: Condition aggravated
     Dates: start: 201711, end: 201801
  16. TRITACE COMBI [Concomitant]
     Indication: Hypertension
  17. OMEPRAZOLE [Concomitant]
     Active Substance: OMEPRAZOLE
     Indication: Hypertension
  18. LEUCOVORIN [Concomitant]
     Active Substance: LEUCOVORIN\LEUCOVORIN CALCIUM
     Indication: Colorectal cancer metastatic
     Dates: start: 201808
  19. INDAP [Concomitant]
     Indication: Hypertension
  20. LEUCOVORIN [Concomitant]
     Active Substance: LEUCOVORIN\LEUCOVORIN CALCIUM
     Indication: Colorectal cancer metastatic
     Dates: start: 201711, end: 201801
  21. LEUCOVORIN [Concomitant]
     Active Substance: LEUCOVORIN\LEUCOVORIN CALCIUM
     Indication: Colorectal cancer metastatic
     Dates: start: 201808, end: 201907
  22. ASPIRIN\GLYCINE [Concomitant]
     Active Substance: ASPIRIN\GLYCINE
     Indication: Hypertension
  23. ZALTRAP [Concomitant]
     Active Substance: ZIV-AFLIBERCEPT
     Indication: Metastases to liver
     Dates: start: 201808, end: 202002
  24. ZALTRAP [Concomitant]
     Active Substance: ZIV-AFLIBERCEPT
     Indication: Colorectal cancer metastatic
     Dates: start: 201808, end: 202002
  25. ZALTRAP [Concomitant]
     Active Substance: ZIV-AFLIBERCEPT
     Indication: Dyspepsia
     Dates: start: 201808, end: 202002
  26. ZALTRAP [Concomitant]
     Active Substance: ZIV-AFLIBERCEPT
     Indication: Proteinuria
     Dates: start: 201808, end: 202002

REACTIONS (7)
  - Neurotoxicity [Unknown]
  - Disease progression [Unknown]
  - Muscle spasms [Unknown]
  - Leukopenia [Unknown]
  - Neutropenia [Unknown]
  - Diarrhoea [Recovered/Resolved]
  - Palmar-plantar erythrodysaesthesia syndrome [Recovered/Resolved]

NARRATIVE: CASE EVENT DATE: 20210601
